FAERS Safety Report 5962807-9 (Version None)
Quarter: 2008Q4

REPORT INFORMATION
  Report Type: 
  Country: None (occurrence: None)
  Receive Date: 20081124
  Receipt Date: 20081120
  Transmission Date: 20090506
  Serious: Yes (Other)
  Sender: FDA-Public Use
  Company Number: DE-BRISTOL-MYERS SQUIBB COMPANY-14336291

PATIENT
  Age: 68 Year
  Sex: Female
  Weight: 69 kg

DRUGS (1)
  1. KARVEZIDE [Suspect]
     Indication: HYPERTENSION
     Dosage: ALSO TAKEN 150 MG FROM 2001 TO AUG-2004, 300 MG ORAL SEP-2004 TO 11-AUG-2008
     Route: 048
     Dates: start: 20010101

REACTIONS (2)
  - AGEUSIA [None]
  - OLFACTORY NERVE DISORDER [None]
